FAERS Safety Report 13295199 (Version 3)
Quarter: 2017Q2

REPORT INFORMATION
  Report Type: Spontaneous
  Country: US (occurrence: US)
  Receive Date: 20170303
  Receipt Date: 20170531
  Transmission Date: 20170830
  Serious: Yes (Hospitalization)
  Sender: FDA-Public Use
  Company Number: US-JNJFOC-20170222959

PATIENT
  Age: 82 Year
  Sex: Female
  Weight: 82 kg

DRUGS (6)
  1. XARELTO [Suspect]
     Active Substance: RIVAROXABAN
     Indication: CEREBROVASCULAR ACCIDENT PROPHYLAXIS
     Dosage: 15MG AND 20 MG
     Route: 048
     Dates: start: 201407
  2. XARELTO [Suspect]
     Active Substance: RIVAROXABAN
     Indication: THROMBOSIS PROPHYLAXIS
     Dosage: 15MG AND 20 MG
     Route: 048
     Dates: start: 201401, end: 20140708
  3. XARELTO [Suspect]
     Active Substance: RIVAROXABAN
     Indication: ATRIAL FIBRILLATION
     Dosage: 15MG AND 20 MG
     Route: 048
     Dates: start: 201407
  4. XARELTO [Suspect]
     Active Substance: RIVAROXABAN
     Indication: CEREBROVASCULAR ACCIDENT PROPHYLAXIS
     Dosage: 15MG AND 20 MG
     Route: 048
     Dates: start: 201401, end: 20140708
  5. XARELTO [Suspect]
     Active Substance: RIVAROXABAN
     Indication: THROMBOSIS PROPHYLAXIS
     Dosage: 15MG AND 20 MG
     Route: 048
     Dates: start: 201407
  6. XARELTO [Suspect]
     Active Substance: RIVAROXABAN
     Indication: ATRIAL FIBRILLATION
     Dosage: 15MG AND 20 MG
     Route: 048
     Dates: start: 201401, end: 20140708

REACTIONS (3)
  - Haematuria [Recovering/Resolving]
  - Diverticular perforation [Unknown]
  - Internal haemorrhage [Unknown]

NARRATIVE: CASE EVENT DATE: 201407
